FAERS Safety Report 10572690 (Version 3)
Quarter: 2015Q1

REPORT INFORMATION
  Report Type: Spontaneous
  Country: ZA (occurrence: None)
  Receive Date: 20141106
  Receipt Date: 20150209
  Transmission Date: 20150720
  Serious: Yes (Other)
  Sender: FDA-Public Use
  Company Number: ZA2014GSK016073

PATIENT
  Age: 39 Year
  Sex: Female

DRUGS (10)
  1. NEVIRAPINE. [Suspect]
     Active Substance: NEVIRAPINE
     Indication: HIV INFECTION
     Route: 048
     Dates: start: 20050501, end: 20140408
  2. TENOFOVIR DISOPROXIL FUMARATE [Suspect]
     Active Substance: TENOFOVIR DISOPROXIL FUMARATE
     Indication: HIV INFECTION
     Route: 048
     Dates: start: 20140408
  3. ISONIAZIDE [Suspect]
     Active Substance: ISONIAZID
     Indication: PULMONARY TUBERCULOSIS
     Dates: start: 20140416
  4. ETHAMBUTOL [Suspect]
     Active Substance: ETHAMBUTOL HYDROCHLORIDE
     Indication: PULMONARY TUBERCULOSIS
     Dates: start: 20140416
  5. PYRAZINAMIDE (PYRAZINAMIDE) [Suspect]
     Active Substance: PYRAZINAMIDE
     Indication: PULMONARY TUBERCULOSIS
     Dates: start: 20140416
  6. RIFAMPIN. [Suspect]
     Active Substance: RIFAMPIN
     Indication: PULMONARY TUBERCULOSIS
     Dates: start: 20140416
  7. FOLATE (FOLIC ACID) [Concomitant]
  8. KALETRA [Suspect]
     Active Substance: LOPINAVIR\RITONAVIR
     Indication: HIV INFECTION
     Dosage: TOTAL DOSE OF OF 8 TABLETS/CAPSULES, ORAL
     Route: 048
     Dates: start: 20140408
  9. LAMIVUDINE (LAMIVUDINE) TABLET [Suspect]
     Active Substance: LAMIVUDINE
     Indication: HIV INFECTION
     Route: 048
     Dates: start: 20050501
  10. STAVUDINE (STAVUDINE) UNKNOWN [Suspect]
     Active Substance: STAVUDINE
     Indication: HIV INFECTION
     Route: 048
     Dates: start: 20050501, end: 20140408

REACTIONS (9)
  - Oligohydramnios [None]
  - Placental infarction [None]
  - Tuberculosis [None]
  - Placental insufficiency [None]
  - Angiopathy [None]
  - Placental disorder [None]
  - Pulmonary tuberculosis [None]
  - Premature labour [None]
  - Exposure during pregnancy [None]

NARRATIVE: CASE EVENT DATE: 20140826
